FAERS Safety Report 6292199-X (Version None)
Quarter: 2009Q3

REPORT INFORMATION
  Report Type: 
  Country: None (occurrence: None)
  Receive Date: 20090731
  Receipt Date: 20090630
  Transmission Date: 20100115
  Serious: Yes (Hospitalization)
  Sender: FDA-Public Use
  Company Number: US-ORACLE-2009S1000244

PATIENT
  Sex: Male

DRUGS (4)
  1. CUBICIN [Suspect]
     Indication: SKIN INFECTION
  2. CUBICIN [Suspect]
     Indication: BACTERAEMIA
  3. VANCOMYCIN [Concomitant]
     Indication: SKIN INFECTION
  4. VANCOMYCIN [Concomitant]
     Indication: BACTERAEMIA

REACTIONS (3)
  - BLOOD CREATINE PHOSPHOKINASE INCREASED [None]
  - SEPTIC SHOCK [None]
  - THROMBOCYTOPENIA [None]
